FAERS Safety Report 17217190 (Version 1)
Quarter: 2019Q4

REPORT INFORMATION
  Report Type: Spontaneous
  Country: US (occurrence: US)
  Receive Date: 20191231
  Receipt Date: 20191231
  Transmission Date: 20200122
  Serious: Yes (Other)
  Sender: FDA-Public Use
  Company Number: US-AUROBINDO-AUR-APL-2019-106474

PATIENT
  Age: 48 Year
  Sex: Male

DRUGS (3)
  1. MISTLETOE [Suspect]
     Active Substance: VISCUM ALBUM FRUITING TOP
     Indication: COUGH
     Dosage: UNK
     Route: 042
  2. ACETYLCYSTEINE. [Suspect]
     Active Substance: ACETYLCYSTEINE
     Indication: COUGH
     Dosage: UNK
     Route: 065
  3. ZINC. [Suspect]
     Active Substance: ZINC
     Indication: COUGH
     Dosage: UNK
     Route: 065

REACTIONS (6)
  - Total lung capacity decreased [Unknown]
  - Forced expiratory volume decreased [Unknown]
  - Lung infiltration [Unknown]
  - Lung diffusion test decreased [Unknown]
  - Interstitial lung disease [Unknown]
  - Forced vital capacity decreased [Unknown]
